FAERS Safety Report 4777934-1 (Version None)
Quarter: 2005Q3

REPORT INFORMATION
  Report Type: 
  Country: None (occurrence: None)
  Receive Date: 20050923
  Receipt Date: 20050912
  Transmission Date: 20060218
  Serious: Yes (Hospitalization)
  Sender: FDA-Public Use
  Company Number: GXKR2005ES01507

PATIENT
  Age: 80 Year
  Sex: Female

DRUGS (5)
  1. METFORMIN HCL [Suspect]
     Dosage: 1700 MG, QD
  2. BISOPROLOL (BISOPROLOL) [Concomitant]
  3. TORSEMIDE [Concomitant]
  4. LERCANIDIPINE [Concomitant]
  5. GLUCOSAMINE (GLUCOSAMINE) [Concomitant]

REACTIONS (4)
  - DYSPEPSIA [None]
  - HEPATITIS CHOLESTATIC [None]
  - IDIOSYNCRATIC DRUG REACTION [None]
  - PRURITUS GENERALISED [None]
